FAERS Safety Report 9053829 (Version 2)
Quarter: 2013Q1

REPORT INFORMATION
  Report Type: Spontaneous
  Country: US (occurrence: None)
  Receive Date: 20130117
  Receipt Date: 20130128
  Transmission Date: 20140127
  Serious: Yes (Hospitalization)
  Sender: FDA-Public Use
  Company Number: JPI-P-028911

PATIENT
  Age: 55 Year
  Sex: Male
  Weight: 90.72 kg

DRUGS (1)
  1. XYREM (500 MILLIGRAM/MILLILITERS, SOLUTION) (SODIUM OXYBATE) [Suspect]
     Indication: FIBROMYALGIA
     Dosage: 5 GM (2.5 GM, 2 IN 1 D), ORAL
     Dates: start: 20080505

REACTIONS (6)
  - Back pain [None]
  - Procedural pain [None]
  - Nausea [None]
  - Pruritus [None]
  - Pain in extremity [None]
  - Arthralgia [None]
